FAERS Safety Report 5384875-8 (Version None)
Quarter: 2007Q3

REPORT INFORMATION
  Report Type: 
  Country: None (occurrence: None)
  Receive Date: 20070709
  Receipt Date: 20070702
  Transmission Date: 20080115
  Serious: Yes (Hospitalization)
  Sender: FDA-Public Use
  Company Number: 200607IM000420

PATIENT
  Age: 72 Year
  Sex: Male
  Weight: 76.6579 kg

DRUGS (6)
  1. INTERFERON GAMMA-1B [Suspect]
     Indication: IDIOPATHIC PULMONARY FIBROSIS
     Dosage: 200 UG; TIW, SUBCUTANEOUS
     Route: 058
     Dates: start: 20050526, end: 20060713
  2. ASPIRIN [Concomitant]
  3. CENTRUM SILVER [Concomitant]
  4. METAMUCIL [Concomitant]
  5. IBUPROFEN [Concomitant]
  6. PRILOSEC [Concomitant]

REACTIONS (2)
  - BLOOD CREATININE INCREASED [None]
  - BLOOD UREA INCREASED [None]
